FAERS Safety Report 4450294-1 (Version None)
Quarter: 2004Q3

REPORT INFORMATION
  Report Type: 
  Country: None (occurrence: None)
  Receive Date: 20040914
  Receipt Date: 20040831
  Transmission Date: 20050211
  Serious: Yes (Other)
  Sender: FDA-Public Use
  Company Number: 2004062499

PATIENT
  Age: 20 Year
  Sex: Female

DRUGS (3)
  1. DIFLUCAN [Suspect]
     Indication: SYSTEMIC MYCOSIS
     Dosage: 200 MG (200 MG, 1 IN 1 D), INTRAVENOUS
     Route: 042
     Dates: start: 20040818, end: 20040830
  2. TIENAM (CILASTATIN, IMIPENEM) [Concomitant]
  3. METRONIDAZOLE [Concomitant]

REACTIONS (6)
  - ALANINE AMINOTRANSFERASE INCREASED [None]
  - ASPARTATE AMINOTRANSFERASE INCREASED [None]
  - HAEMATOMA INFECTION [None]
  - POSTOPERATIVE INFECTION [None]
  - RETROPERITONEAL HAEMATOMA [None]
  - SEPSIS [None]
